FAERS Safety Report 23970957 (Version 1)
Quarter: 2024Q2

REPORT INFORMATION
  Report Type: Spontaneous
  Country: GB (occurrence: GB)
  Receive Date: 20240613
  Receipt Date: 20240613
  Transmission Date: 20240716
  Serious: Yes (Disabling, Other)
  Sender: FDA-Public Use
  Company Number: None

PATIENT
  Age: 70 Year
  Sex: Male

DRUGS (1)
  1. OLANZAPINE PAMOATE [Suspect]
     Active Substance: OLANZAPINE PAMOATE
     Indication: Schizophrenia
     Dosage: 2 WEEKLY
     Dates: end: 20240530

REACTIONS (4)
  - Post-injection delirium sedation syndrome [Unknown]
  - Cardiac arrest [Recovered/Resolved]
  - Medication error [Unknown]
  - Agitation [Unknown]

NARRATIVE: CASE EVENT DATE: 20240529
